FAERS Safety Report 6213265-0 (Version None)
Quarter: 2009Q2

REPORT INFORMATION
  Report Type: 
  Country: None (occurrence: None)
  Receive Date: 20090603
  Receipt Date: 20090519
  Transmission Date: 20091009
  Serious: Yes (Other)
  Sender: FDA-Public Use
  Company Number: CO-MERCK-0905COL00004

PATIENT
  Age: 64 Year
  Sex: Female

DRUGS (3)
  1. HYZAAR [Suspect]
     Route: 048
     Dates: start: 20070101
  2. EZETIMIBE AND SIMVASTATIN [Concomitant]
     Indication: DYSLIPIDAEMIA
     Route: 048
     Dates: start: 20081201
  3. ALENDRONATE SODIUM AND CHOLECALCIFEROL [Concomitant]
     Indication: OSTEOPOROSIS
     Route: 048
     Dates: start: 20070101

REACTIONS (2)
  - BREAST CANCER [None]
  - BREAST CANCER FEMALE [None]
